FAERS Safety Report 16223402 (Version 1)
Quarter: 2019Q2

REPORT INFORMATION
  Report Type: Spontaneous
  Country: US (occurrence: US)
  Receive Date: 20190422
  Receipt Date: 20190422
  Transmission Date: 20190711
  Serious: Yes (Other)
  Sender: FDA-Public Use
  Company Number: US-PFIZER INC-2019169752

PATIENT
  Age: 57 Year
  Sex: Male
  Weight: 113.38 kg

DRUGS (27)
  1. PREVACID [Suspect]
     Active Substance: LANSOPRAZOLE
     Indication: GASTROOESOPHAGEAL REFLUX DISEASE
     Dosage: 30 MG, DAILY
     Dates: start: 198810, end: 200205
  2. BUMETANIDE. [Concomitant]
     Active Substance: BUMETANIDE
     Indication: OEDEMA
  3. PRILOSEC [Suspect]
     Active Substance: OMEPRAZOLE MAGNESIUM
     Indication: GASTROOESOPHAGEAL REFLUX DISEASE
     Dosage: 40 MG, DAILY
  4. RABEPRAZOLE [Suspect]
     Active Substance: RABEPRAZOLE
     Indication: GASTROOESOPHAGEAL REFLUX DISEASE
     Dosage: 20 MG, DAILY
     Dates: start: 200203, end: 200211
  5. LOSARTAN. [Concomitant]
     Active Substance: LOSARTAN
     Indication: HYPERTENSION
  6. ASPIRIN (E.C.) [Concomitant]
     Active Substance: ASPIRIN
     Indication: ANALGESIC THERAPY
     Dosage: UNK
     Dates: start: 2015
  7. TAGAMET HB [Concomitant]
     Active Substance: CIMETIDINE
     Dosage: UNK
     Dates: start: 2001, end: 2005
  8. TUMS [Concomitant]
     Active Substance: CALCIUM CARBONATE
     Dosage: 2 - 4 TABLETS, AS NEEDED
     Dates: start: 2001
  9. INSULIN [Concomitant]
     Active Substance: INSULIN NOS
     Indication: DIABETES MELLITUS
  10. LASIX [Concomitant]
     Active Substance: FUROSEMIDE
     Indication: HYPERTENSION
  11. PEPCID AC [Concomitant]
     Active Substance: FAMOTIDINE
     Dosage: UNK
     Dates: start: 2001, end: 2005
  12. PEPTO-BISMOL [Concomitant]
     Active Substance: BISMUTH SUBSALICYLATE
     Dosage: 30 ML, AS NEEDED
     Dates: start: 2001
  13. HYDRALAZINE [Concomitant]
     Active Substance: HYDRALAZINE HYDROCHLORIDE
     Indication: HYPERTENSION
  14. FAMOTIDINE. [Concomitant]
     Active Substance: FAMOTIDINE
  15. RANITIDINE HYDROCHLORIDE. [Concomitant]
     Active Substance: RANITIDINE HYDROCHLORIDE
     Dosage: UNK
     Dates: start: 2017
  16. ALKA-SELTZER [Concomitant]
     Active Substance: ANHYDROUS CITRIC ACID\ASPIRIN\SODIUM BICARBONATE
     Dosage: 2 TABLETS, AS NEEDED
     Dates: start: 2001
  17. ROLAIDS [CALCIUM CARBONATE;MAGNESIUM HYDROXIDE] [Concomitant]
     Dosage: 2 - 4 TABLETS, AS NEEDED
  18. LANSOPRAZOLE. [Suspect]
     Active Substance: LANSOPRAZOLE
     Indication: GASTROOESOPHAGEAL REFLUX DISEASE
     Dosage: UNK
     Dates: start: 199912, end: 200107
  19. PREVACID 24 HR [Suspect]
     Active Substance: LANSOPRAZOLE
     Indication: GASTROOESOPHAGEAL REFLUX DISEASE
     Dosage: 15 MG, DAILY
  20. OMEPRAZOLE SODIUM [Suspect]
     Active Substance: OMEPRAZOLE SODIUM
     Dosage: 20 MG, DAILY
  21. MYLANTA [CALCIUM CARBONATE] [Concomitant]
     Dosage: 10-20ML, AS NEEDED
     Dates: start: 2001
  22. PANTOPRAZOLE [Suspect]
     Active Substance: PANTOPRAZOLE
     Indication: GASTROOESOPHAGEAL REFLUX DISEASE
     Dosage: 40 MG, DAILY
     Dates: start: 2001, end: 2013
  23. NEXIUM 24HR [Suspect]
     Active Substance: ESOMEPRAZOLE MAGNESIUM
     Indication: GASTROOESOPHAGEAL REFLUX DISEASE
     Dosage: 20 MG, DAILY
  24. PRILOSEC OTC [Suspect]
     Active Substance: OMEPRAZOLE MAGNESIUM
     Indication: GASTROOESOPHAGEAL REFLUX DISEASE
     Dosage: 20 MG, DAILY
  25. TAMSULOSIN [Concomitant]
     Active Substance: TAMSULOSIN
  26. VITAMIN D3 [Concomitant]
     Active Substance: CHOLECALCIFEROL
     Indication: VITAMIN SUPPLEMENTATION
     Dosage: UNK
     Dates: start: 2015
  27. ZANTAC [Concomitant]
     Active Substance: RANITIDINE HYDROCHLORIDE
     Dosage: UNK
     Dates: start: 2001, end: 2005

REACTIONS (2)
  - Renal failure [Not Recovered/Not Resolved]
  - Chronic kidney disease [Not Recovered/Not Resolved]

NARRATIVE: CASE EVENT DATE: 20160325
